FAERS Safety Report 23262197 (Version 1)
Quarter: 2023Q4

REPORT INFORMATION
  Report Type: Spontaneous
  Country: US (occurrence: None)
  Receive Date: 20231204
  Receipt Date: 20231204
  Transmission Date: 20240110
  Serious: Yes (Hospitalization)
  Sender: FDA-Public Use
  Company Number: None

PATIENT
  Age: 46 Year
  Sex: Male
  Weight: 79 kg

DRUGS (1)
  1. CHLORTHALIDONE [Suspect]
     Active Substance: CHLORTHALIDONE
     Dates: start: 20180601, end: 20231114

REACTIONS (5)
  - Fatigue [None]
  - Asthenia [None]
  - Decreased appetite [None]
  - Tachycardia [None]
  - Hypokalaemia [None]

NARRATIVE: CASE EVENT DATE: 20231114
